FAERS Safety Report 14841588 (Version 2)
Quarter: 2018Q2

REPORT INFORMATION
  Report Type: Spontaneous
  Country: US (occurrence: US)
  Receive Date: 20180503
  Receipt Date: 20180518
  Transmission Date: 20180711
  Serious: Yes (Hospitalization)
  Sender: FDA-Public Use
  Company Number: US-TEVA-2018-US-887739

PATIENT
  Age: 44 Year
  Sex: Female

DRUGS (2)
  1. IBUPROFEN. [Suspect]
     Active Substance: IBUPROFEN
     Indication: HEADACHE
     Dosage: EXCESS USE
     Route: 065
  2. ACETAMINOPHEN/ASPIRIN/CAFFEINE [Suspect]
     Active Substance: ACETAMINOPHEN\ASPIRIN\CAFFEINE
     Indication: HEADACHE
     Dosage: EXCESS USE
     Route: 065

REACTIONS (8)
  - Oesophagitis [Recovered/Resolved]
  - Duodenal ulcer [Recovered/Resolved]
  - Obstruction gastric [Recovered/Resolved]
  - Duodenal stenosis [Recovered/Resolved]
  - Gastritis [Recovered/Resolved]
  - Oedema mucosal [Recovered/Resolved]
  - Gastric mucosa erythema [Recovered/Resolved]
  - Bezoar [Recovered/Resolved]
